FAERS Safety Report 21919803 (Version 2)
Quarter: 2023Q1

REPORT INFORMATION
  Report Type: Spontaneous
  Country: US (occurrence: None)
  Receive Date: 20230127
  Receipt Date: 20230130
  Transmission Date: 20230417
  Serious: Yes (Hospitalization)
  Sender: FDA-Public Use
  Company Number: US-MDD US Operations-MDD202301-000209

PATIENT
  Age: 83 Year
  Sex: Male

DRUGS (1)
  1. APOKYN [Suspect]
     Active Substance: APOMORPHINE HYDROCHLORIDE
     Indication: Product used for unknown indication
     Dosage: NOT PROVIDED
     Route: 058

REACTIONS (1)
  - Staphylococcal infection [Unknown]

NARRATIVE: CASE EVENT DATE: 20230117
